FAERS Safety Report 7908980-4 (Version None)
Quarter: 2011Q4

REPORT INFORMATION
  Report Type: 
  Country: None (occurrence: None)
  Receive Date: 20111111
  Receipt Date: 20111028
  Transmission Date: 20120403
  Serious: Yes (Hospitalization, Other)
  Sender: FDA-Public Use
  Company Number: PHHY2011AU96177

PATIENT
  Age: 57 Year
  Sex: Male

DRUGS (4)
  1. TACROLIMUS [Concomitant]
     Dosage: 0.1 MG/KG, BID
  2. BASILIXIMAB [Suspect]
     Indication: RENAL TRANSPLANT
  3. MYCOPHENOLATE MOFETIL [Concomitant]
     Dosage: 500 MG, BID
  4. PREDNISOLONE [Concomitant]

REACTIONS (20)
  - LUNG DISORDER [None]
  - RALES [None]
  - RENAL IMPAIRMENT [None]
  - HYPOXIA [None]
  - CYTOMEGALOVIRUS INFECTION [None]
  - FUNGAEMIA [None]
  - PNEUMONIA [None]
  - PYREXIA [None]
  - BLOOD CREATININE INCREASED [None]
  - CLOSTRIDIAL INFECTION [None]
  - MICROSPORIDIA INFECTION [None]
  - MYCOBACTERIUM TUBERCULOSIS COMPLEX TEST POSITIVE [None]
  - KIDNEY TRANSPLANT REJECTION [None]
  - LUNG INFILTRATION [None]
  - CYTOMEGALOVIRUS COLITIS [None]
  - FUNGAL SKIN INFECTION [None]
  - TUBULOINTERSTITIAL NEPHRITIS [None]
  - TACHYCARDIA [None]
  - PANCYTOPENIA [None]
  - LUNG INFECTION [None]
